FAERS Safety Report 9585807 (Version 2)
Quarter: 2013Q4

REPORT INFORMATION
  Report Type: Spontaneous
  Country: BR (occurrence: BR)
  Receive Date: 20131003
  Receipt Date: 20131118
  Transmission Date: 20140711
  Serious: Yes (Hospitalization, Other)
  Sender: FDA-Public Use
  Company Number: BR-BRISTOL-MYERS SQUIBB COMPANY-19437565

PATIENT
  Age: 88 Year
  Sex: Male
  Weight: 50 kg

DRUGS (7)
  1. KOMBIGLYZE XR [Suspect]
     Indication: DIABETES MELLITUS
     Dosage: 1DF= 5/1000 MG ?INT 21JUL13
     Dates: start: 201306
  2. METFORMIN HCL [Suspect]
     Indication: DIABETES MELLITUS
  3. GLIMEPIRIDE [Suspect]
     Indication: DIABETES MELLITUS
  4. RIVOTRIL [Concomitant]
     Indication: SLEEP DISORDER
  5. CLOPIDOGREL BISULFATE [Concomitant]
     Indication: CARDIAC DISORDER
  6. LOSARTAN POTASSIUM [Concomitant]
  7. CORDAREX [Concomitant]
     Indication: BLOOD PRESSURE INCREASED

REACTIONS (4)
  - Hypoglycaemia [Recovering/Resolving]
  - Urinary tract infection [Recovering/Resolving]
  - Fall [Recovering/Resolving]
  - Head injury [Recovering/Resolving]
